FAERS Safety Report 5800709-9 (Version None)
Quarter: 2008Q3

REPORT INFORMATION
  Report Type: 
  Country: None (occurrence: None)
  Receive Date: 20080703
  Receipt Date: 20080627
  Transmission Date: 20090109
  Serious: Yes (Hospitalization)
  Sender: FDA-Public Use
  Company Number: US-ABBOTT-08P-163-0459821-00

PATIENT
  Sex: Female

DRUGS (2)
  1. RITONAVIR SOFT GELATIN CAPSULES [Suspect]
     Indication: HIV INFECTION
     Route: 048
     Dates: start: 20020918
  2. FOSAMPRENAVIR [Concomitant]
     Indication: HIV INFECTION
     Route: 048
     Dates: start: 20020915

REACTIONS (1)
  - NECK MASS [None]
